FAERS Safety Report 8612649-0 (Version None)
Quarter: 2012Q3

REPORT INFORMATION
  Report Type: 
  Country: None (occurrence: None)
  Receive Date: 20120822
  Receipt Date: 20111104
  Transmission Date: 20120928
  Serious: No
  Sender: FDA-Public Use
  Company Number: US-ASTRAZENECA-2011SE56603

PATIENT
  Age: 54 Year
  Sex: Female
  Weight: 136.1 kg

DRUGS (2)
  1. SYMBICORT [Suspect]
     Indication: ASTHMA
     Dosage: 160/ 4.5 MICROGRAMMS TWO TIMES DAILY
     Route: 055
  2. SYMBICORT [Suspect]
     Dosage: 160/ 4.5 MICROGRAMMS THREE TIMES DAILY
     Route: 055

REACTIONS (2)
  - DRUG INEFFECTIVE [None]
  - INCORRECT DOSE ADMINISTERED [None]
